FAERS Safety Report 6163880-8 (Version None)
Quarter: 2009Q2

REPORT INFORMATION
  Report Type: 
  Country: None (occurrence: None)
  Receive Date: 20090422
  Receipt Date: 20090408
  Transmission Date: 20091009
  Serious: Yes (Other)
  Sender: FDA-Public Use
  Company Number: JP-MERCK-0903USA05236

PATIENT
  Age: 58 Year
  Sex: Female
  Weight: 47 kg

DRUGS (6)
  1. FOSAMAX [Suspect]
     Indication: OSTEOPOROSIS
     Route: 048
     Dates: start: 20080118, end: 20090408
  2. FOSAMAX [Suspect]
     Route: 048
     Dates: start: 20070109, end: 20080117
  3. ALFAROL [Suspect]
     Indication: OSTEOPOROSIS
     Route: 048
     Dates: start: 20070109, end: 20090408
  4. AMARYL [Concomitant]
     Route: 048
     Dates: start: 20070109, end: 20081211
  5. AMARYL [Concomitant]
     Route: 048
     Dates: start: 20081212
  6. PREDONINE [Concomitant]
     Indication: MUSCULOSKELETAL PAIN
     Route: 048
     Dates: start: 20070109

REACTIONS (2)
  - NAIL DISCOLOURATION [None]
  - NAIL DISORDER [None]
